FAERS Safety Report 4925652-9 (Version None)
Quarter: 2006Q1

REPORT INFORMATION
  Report Type: 
  Country: None (occurrence: None)
  Receive Date: 20060228
  Receipt Date: 20050117
  Transmission Date: 20060701
  Serious: No
  Sender: FDA-Public Use
  Company Number: US-GLAXOSMITHKLINE-A0540943A

PATIENT
  Age: 31 Year
  Sex: Female
  Weight: 59.1 kg

DRUGS (2)
  1. LAMICTAL [Suspect]
     Indication: BIPOLAR DISORDER
     Dosage: 12.5MG PER DAY
     Route: 048
     Dates: start: 20041223, end: 20050107
  2. LEXAPRO [Concomitant]
     Dosage: 15MG PER DAY
     Route: 048

REACTIONS (1)
  - RASH [None]
